FAERS Safety Report 13319147 (Version 2)
Quarter: 2017Q2

REPORT INFORMATION
  Report Type: Spontaneous
  Country: JP (occurrence: JP)
  Receive Date: 20170310
  Receipt Date: 20170403
  Transmission Date: 20170830
  Serious: Yes (Other)
  Sender: FDA-Public Use
  Company Number: JP-SUCAMPO PHARMACEUTICALS INC.-SPI201700297

PATIENT
  Age: 69 Year
  Sex: Female

DRUGS (1)
  1. AMITIZA [Suspect]
     Active Substance: LUBIPROSTONE
     Indication: CONSTIPATION
     Dosage: 24 MCG, QD
     Route: 048
     Dates: start: 20161226, end: 20170205

REACTIONS (11)
  - Blood creatine phosphokinase increased [Recovering/Resolving]
  - Femur fracture [Unknown]
  - Muscular weakness [Unknown]
  - Liver function test abnormal [Unknown]
  - Fall [Unknown]
  - Malaise [Unknown]
  - Discomfort [Unknown]
  - Musculoskeletal pain [Unknown]
  - Hypoaesthesia [Unknown]
  - Contusion [Unknown]
  - Dizziness [Unknown]

NARRATIVE: CASE EVENT DATE: 20170107
